FAERS Safety Report 24864352 (Version 1)
Quarter: 2025Q1

REPORT INFORMATION
  Report Type: Spontaneous
  Country: US (occurrence: US)
  Receive Date: 20250120
  Receipt Date: 20250120
  Transmission Date: 20250409
  Serious: No
  Sender: MERCK
  Company Number: US-009507513-2412USA008517

PATIENT
  Sex: Female
  Weight: 52.608 kg

DRUGS (18)
  1. WINREVAIR [Suspect]
     Active Substance: SOTATERCEPT-CSRK
     Dates: start: 2024
  2. REMODULIN [Suspect]
     Active Substance: TREPROSTINIL
     Indication: Pulmonary arterial hypertension
     Route: 041
     Dates: start: 20220908
  3. CARVEDILOL [Concomitant]
     Active Substance: CARVEDILOL
  4. SUMATRIPTAN SUCCINATE [Concomitant]
     Active Substance: SUMATRIPTAN SUCCINATE
  5. LIDODERM [Concomitant]
     Active Substance: LIDOCAINE
  6. ACETAMINOPHEN [Concomitant]
     Active Substance: ACETAMINOPHEN
  7. MUPIROCIN [Concomitant]
     Active Substance: MUPIROCIN
  8. DULOXETINE HYDROCHLORIDE [Concomitant]
     Active Substance: DULOXETINE HYDROCHLORIDE
  9. VITAMIN D3 [Concomitant]
     Active Substance: CHOLECALCIFEROL
  10. BROMPHENIRAMINE\PSEUDOEPHEDRINE [Concomitant]
     Active Substance: BROMPHENIRAMINE\PSEUDOEPHEDRINE
  11. CELLCEPT [Concomitant]
     Active Substance: MYCOPHENOLATE MOFETIL
  12. FAMOTIDINE [Concomitant]
     Active Substance: FAMOTIDINE
  13. ADEMPAS [Concomitant]
     Active Substance: RIOCIGUAT
  14. VASCEPA [Concomitant]
     Active Substance: ICOSAPENT ETHYL
  15. PREDNISONE [Concomitant]
     Active Substance: PREDNISONE
  16. OMEPRAZOLE [Concomitant]
     Active Substance: OMEPRAZOLE
  17. HYDROXYZINE HYDROCHLORIDE [Concomitant]
     Active Substance: HYDROXYZINE HYDROCHLORIDE
  18. BENZONATATE [Concomitant]
     Active Substance: BENZONATATE

REACTIONS (1)
  - Dyspepsia [Recovered/Resolved]
